FAERS Safety Report 8921047 (Version 1)
Quarter: 2012Q4

REPORT INFORMATION
  Report Type: Report from Study
  Country: CA (occurrence: CA)
  Receive Date: 20121122
  Receipt Date: 20121122
  Transmission Date: 20130627
  Serious: Yes (Death)
  Sender: FDA-Public Use
  Company Number: CA-ROCHE-1158689

PATIENT
  Sex: Male

DRUGS (12)
  1. VEMURAFENIB [Suspect]
     Indication: METASTATIC MALIGNANT MELANOMA
     Route: 048
     Dates: start: 201208, end: 201211
  2. TAPAZOLE [Concomitant]
  3. HYDROMORPHONE [Concomitant]
  4. DEXAMETHASONE [Concomitant]
     Route: 065
  5. SCOPOLAMINE PATCH [Concomitant]
  6. LAX-A-DAY [Concomitant]
  7. MULTIVITAMINS [Concomitant]
  8. VITAMIN C [Concomitant]
  9. VITAMIN D [Concomitant]
  10. OMEGA 3 [Concomitant]
  11. ACIDOPHILUS [Concomitant]
  12. AMBROTOSE PRODUCT NOS [Concomitant]

REACTIONS (1)
  - Death [Fatal]
